FAERS Safety Report 6891679-3 (Version None)
Quarter: 2010Q3

REPORT INFORMATION
  Report Type: 
  Country: None (occurrence: None)
  Receive Date: 20100731
  Receipt Date: 20071025
  Transmission Date: 20110219
  Serious: No
  Sender: FDA-Public Use
  Company Number: US-PFIZER INC-2007075718

PATIENT
  Sex: Male

DRUGS (1)
  1. CAVERJECT [Suspect]
     Dates: start: 20070401

REACTIONS (1)
  - DEVICE MALFUNCTION [None]
